FAERS Safety Report 6282774-0 (Version None)
Quarter: 2009Q3

REPORT INFORMATION
  Report Type: 
  Country: None (occurrence: None)
  Receive Date: 20090724
  Receipt Date: 20090714
  Transmission Date: 20100115
  Serious: Yes (Hospitalization)
  Sender: FDA-Public Use
  Company Number: PL-PFIZER INC-2009244438

PATIENT
  Age: 75 Year

DRUGS (13)
  1. HYDROXYZINE HCL [Suspect]
     Indication: NEUROSIS
     Dosage: 50 MG, UNK
     Route: 048
     Dates: end: 20090608
  2. HYDROXYZINE HCL [Suspect]
     Indication: INSOMNIA
  3. HALOPERIDOL [Suspect]
     Indication: NEUROSIS
     Dosage: 3 MG, UNK
     Route: 048
     Dates: end: 20090608
  4. HALOPERIDOL [Suspect]
     Indication: INSOMNIA
  5. LERIVON [Suspect]
     Indication: NEUROSIS
     Dosage: 30 MG, UNK
     Route: 048
     Dates: end: 20090608
  6. LERIVON [Suspect]
     Indication: INSOMNIA
  7. ESTAZOLAM [Suspect]
     Indication: NEUROSIS
     Dosage: 3 MG, UNK
     Route: 048
     Dates: end: 20090608
  8. ESTAZOLAM [Suspect]
     Indication: INSOMNIA
  9. BELLAPAN [Concomitant]
  10. RAMIPRIL [Concomitant]
  11. AMLODIPINE [Concomitant]
  12. ACETYLSALICYLIC ACID [Concomitant]
  13. PIRACETAM [Concomitant]

REACTIONS (4)
  - BALANCE DISORDER [None]
  - CONFUSIONAL STATE [None]
  - DIZZINESS [None]
  - SEDATION [None]
